FAERS Safety Report 5706818-7 (Version None)
Quarter: 2008Q2

REPORT INFORMATION
  Report Type: 
  Country: None (occurrence: None)
  Receive Date: 20080416
  Receipt Date: 20080409
  Transmission Date: 20081010
  Serious: Yes (Other)
  Sender: FDA-Public Use
  Company Number: FR-JNJFOC-20080402787

PATIENT
  Age: 46 Year
  Sex: Male

DRUGS (1)
  1. RISPERDAL CONSTA [Suspect]
     Indication: DELIRIUM
     Route: 030

REACTIONS (4)
  - ARRHYTHMIA [None]
  - DISTURBANCE IN ATTENTION [None]
  - MUSCULOSKELETAL CHEST PAIN [None]
  - URINARY INCONTINENCE [None]
